FAERS Safety Report 7162744-0 (Version None)
Quarter: 2010Q4

REPORT INFORMATION
  Report Type: 
  Country: None (occurrence: None)
  Receive Date: 20101215
  Receipt Date: 20091215
  Transmission Date: 20110411
  Serious: Yes (Hospitalization, Other)
  Sender: FDA-Public Use
  Company Number: PL-PFIZER INC-2009310210

PATIENT
  Age: 17 Year
  Sex: Female
  Weight: 42 kg

DRUGS (2)
  1. SILDENAFIL CITRATE [Suspect]
     Indication: PULMONARY HYPERTENSION
     Dosage: 20 MG, 3X/DAY
     Route: 048
     Dates: start: 20090519
  2. BESTPIRIN [Concomitant]
     Indication: PULMONARY HYPERTENSION
     Dosage: 30 MG, ALTERNATE DAY
     Route: 048
     Dates: end: 20091212

REACTIONS (1)
  - UPPER LIMB FRACTURE [None]
